FAERS Safety Report 6265656-X (Version None)
Quarter: 2009Q3

REPORT INFORMATION
  Report Type: 
  Country: None (occurrence: None)
  Receive Date: 20090709
  Receipt Date: 20090709
  Transmission Date: 20100115
  Serious: Yes (Life-Threatening, Hospitalization, Other)
  Sender: FDA-Public Use
  Company Number: None

PATIENT
  Age: 26 Year
  Sex: Male
  Weight: 95.2554 kg

DRUGS (2)
  1. LEVAQUIN [Suspect]
     Indication: ABSCESS
     Dosage: 650 MG DAILY PO
     Route: 048
     Dates: start: 20080828, end: 20080829
  2. LEVAQUIN [Suspect]
     Indication: DIABETIC COMPLICATION
     Dosage: 650 MG DAILY PO
     Route: 048
     Dates: start: 20080828, end: 20080829

REACTIONS (3)
  - COMA [None]
  - HYPOGLYCAEMIA [None]
  - SHOCK [None]
